FAERS Safety Report 4477212-4 (Version None)
Quarter: 2004Q4

REPORT INFORMATION
  Report Type: 
  Country: None (occurrence: None)
  Receive Date: 20041018
  Receipt Date: 20041006
  Transmission Date: 20050328
  Serious: Yes (Other)
  Sender: FDA-Public Use
  Company Number: AU-JNJFOC-20040908767

PATIENT
  Age: 77 Year
  Sex: Male
  Weight: 67 kg

DRUGS (8)
  1. REMINYL [Suspect]
     Indication: DRUG USE FOR UNKNOWN INDICATION
     Route: 049
  2. BETA BLOCKER [Concomitant]
  3. ADALAT OROS [Concomitant]
  4. MINAX [Concomitant]
  5. ISCOVER [Concomitant]
  6. ZOCOR [Concomitant]
  7. LOSEC [Concomitant]
  8. ZYLOPRIM [Concomitant]

REACTIONS (1)
  - ACUTE CORONARY SYNDROME [None]
